FAERS Safety Report 9806663 (Version 1)
Quarter: 2014Q1

REPORT INFORMATION
  Report Type: Report from Study
  Country: US (occurrence: US)
  Receive Date: 20140109
  Receipt Date: 20140109
  Transmission Date: 20141002
  Serious: No
  Sender: FDA-Public Use
  Company Number: US-ABBVIE-13P-163-1052763-00

PATIENT
  Age: 58 Year
  Sex: Female

DRUGS (1)
  1. VICODIN [Suspect]
     Indication: PRODUCT USED FOR UNKNOWN INDICATION

REACTIONS (2)
  - Medication error [Unknown]
  - Urticaria [Unknown]
